FAERS Safety Report 4279853-6 (Version None)
Quarter: 2004Q1

REPORT INFORMATION
  Report Type: 
  Country: None (occurrence: None)
  Receive Date: 20040128
  Receipt Date: 20040107
  Transmission Date: 20041129
  Serious: Yes (Disabling)
  Sender: FDA-Public Use
  Company Number: PHFR2004GB00511

PATIENT
  Age: 40 Year
  Sex: Female

DRUGS (1)
  1. LAMISIL [Suspect]
     Indication: ONYCHOMYCOSIS
     Dosage: 250 MG/DAY
     Route: 048
     Dates: start: 20020807, end: 20021129

REACTIONS (5)
  - DEPRESSION [None]
  - FATIGUE [None]
  - LETHARGY [None]
  - MENTAL DISORDER [None]
  - POST VIRAL FATIGUE SYNDROME [None]
